FAERS Safety Report 5156768-2 (Version None)
Quarter: 2006Q4

REPORT INFORMATION
  Report Type: 
  Country: None (occurrence: None)
  Receive Date: 20061115
  Receipt Date: 20061103
  Transmission Date: 20070319
  Serious: Yes (Life-Threatening, Hospitalization)
  Sender: FDA-Public Use
  Company Number: S06-DEN-03810-01

PATIENT
  Sex: Male

DRUGS (10)
  1. AKARIN (CITALOPRAM) [Suspect]
     Indication: DEPRESSION
     Dosage: 20 MG PO
     Route: 048
     Dates: start: 20060210, end: 20060507
  2. NORVASC [Concomitant]
  3. WARFARIN SODIUM [Concomitant]
  4. CENTYL MED KALIUMKLORID [Concomitant]
  5. CORODIL (ENALAPRIL) [Concomitant]
  6. METOPROLOL SUCCINATE [Concomitant]
  7. KALEROID (POTASSIUM CHLORIDE) [Concomitant]
  8. PAMOL (PARACETAMOL) [Concomitant]
  9. VITRON-C [Concomitant]
  10. INSULATARD NPH HUMAN [Concomitant]

REACTIONS (2)
  - NEUTROPHIL COUNT DECREASED [None]
  - WHITE BLOOD CELL COUNT DECREASED [None]
